FAERS Safety Report 5127338-7 (Version None)
Quarter: 2006Q4

REPORT INFORMATION
  Report Type: 
  Country: None (occurrence: None)
  Receive Date: 20061010
  Receipt Date: 20060927
  Transmission Date: 20070319
  Serious: Yes (Other)
  Sender: FDA-Public Use
  Company Number: 2006117753

PATIENT

DRUGS (1)
  1. PREGABALIN (PREGABALIN) [Suspect]
     Dosage: (1800 MG)

REACTIONS (3)
  - DRUG PRESCRIBING ERROR [None]
  - INCORRECT DOSE ADMINISTERED [None]
  - RESPIRATORY FAILURE [None]
